FAERS Safety Report 11996010 (Version 1)
Quarter: 2016Q1

REPORT INFORMATION
  Report Type: Spontaneous
  Country: FR (occurrence: FR)
  Receive Date: 20160203
  Receipt Date: 20160203
  Transmission Date: 20160526
  Serious: Yes (Hospitalization)
  Sender: FDA-Public Use
  Company Number: FR-SA-2016SA015376

PATIENT
  Age: 35 Year
  Sex: Female

DRUGS (10)
  1. MIRCERA [Concomitant]
     Active Substance: METHOXY POLYETHYLENE GLYCOL-EPOETIN BETA
     Dosage: DOSE: 1 DF EVERY 4 WEEKS ? 75 MCG/0.3 ML INJECTABLE SOLUTION
  2. KARDEGIC [Concomitant]
     Active Substance: ASPIRIN LYSINE
     Dosage: POWDER FOR ORAL ?SOLUTION
     Route: 048
  3. SODIUM BICARBONATE. [Concomitant]
     Active Substance: SODIUM BICARBONATE
     Route: 048
  4. OLMETEC [Suspect]
     Active Substance: OLMESARTAN MEDOXOMIL
     Route: 048
     Dates: start: 201003, end: 201509
  5. ADVAGRAF [Concomitant]
     Active Substance: TACROLIMUS
     Route: 048
  6. EUPRESSYL [Concomitant]
     Active Substance: URAPIDIL
     Dosage: STRENGTH: 30MG
     Route: 048
  7. UVEDOSE [Concomitant]
     Active Substance: CHOLECALCIFEROL
     Dosage: DOSE: 1 AMPOULE MONTHLY
     Route: 048
  8. LASILIX [Suspect]
     Active Substance: FUROSEMIDE
     Route: 048
     Dates: end: 20150825
  9. LERCAN [Concomitant]
     Active Substance: LERCANIDIPINE
     Route: 048
  10. CORTANCYL [Concomitant]
     Active Substance: PREDNISONE
     Route: 048

REACTIONS (3)
  - Acute prerenal failure [Not Recovered/Not Resolved]
  - Dehydration [Recovered/Resolved]
  - Diarrhoea [Recovered/Resolved]
